FAERS Safety Report 9660768 (Version 2)
Quarter: 2013Q4

REPORT INFORMATION
  Report Type: Spontaneous
  Country: MY (occurrence: MY)
  Receive Date: 20131031
  Receipt Date: 20131202
  Transmission Date: 20140711
  Serious: Yes (Hospitalization)
  Sender: FDA-Public Use
  Company Number: MY-GLAXOSMITHKLINE-B0934968A

PATIENT
  Sex: Female
  Weight: 52 kg

DRUGS (3)
  1. BENLYSTA [Suspect]
     Indication: SYSTEMIC LUPUS ERYTHEMATOSUS
     Dosage: 520MG PER DAY
     Route: 042
     Dates: start: 20131016, end: 20131016
  2. HYDROCORTISONE [Concomitant]
     Indication: SYSTEMIC LUPUS ERYTHEMATOSUS
     Dosage: 10MG PER DAY
     Route: 065
  3. MYCOPHENOLATE [Concomitant]
     Indication: PRODUCT USED FOR UNKNOWN INDICATION
     Route: 065

REACTIONS (12)
  - Serum sickness-like reaction [Recovered/Resolved]
  - Fatigue [Recovered/Resolved]
  - Rash generalised [Recovered/Resolved]
  - Bronchospasm [Recovered/Resolved]
  - Joint stiffness [Recovered/Resolved]
  - Pyrexia [Unknown]
  - Arthropathy [Unknown]
  - Rash pruritic [Unknown]
  - Hyperaesthesia [Unknown]
  - Chest discomfort [Unknown]
  - Dyspnoea [Unknown]
  - Swelling [Unknown]
